FAERS Safety Report 16566031 (Version 1)
Quarter: 2019Q3

REPORT INFORMATION
  Report Type: Spontaneous
  Country: DE (occurrence: DE)
  Receive Date: 20190712
  Receipt Date: 20190712
  Transmission Date: 20191004
  Serious: Yes (Death, Hospitalization)
  Sender: FDA-Public Use
  Company Number: DE-PFIZER INC-2019293369

PATIENT
  Age: 65 Year
  Sex: Female

DRUGS (2)
  1. CORTISON [Suspect]
     Active Substance: CORTISONE ACETATE
     Dosage: UNK
  2. METHOTREXATE SODIUM. [Suspect]
     Active Substance: METHOTREXATE SODIUM
     Dosage: UNK

REACTIONS (3)
  - Death [Fatal]
  - Pathological fracture [Unknown]
  - Fracture [Unknown]

NARRATIVE: CASE EVENT DATE: 20160614
